FAERS Safety Report 6497503-5 (Version None)
Quarter: 2009Q4

REPORT INFORMATION
  Report Type: 
  Country: None (occurrence: None)
  Receive Date: 20091215
  Receipt Date: 20091204
  Transmission Date: 20100525
  Serious: Yes (Other)
  Sender: FDA-Public Use
  Company Number: JP-BRISTOL-MYERS SQUIBB COMPANY-14888770

PATIENT
  Age: 11 Year
  Sex: Male

DRUGS (3)
  1. BRIPLATIN [Suspect]
     Indication: GERM CELL CANCER
     Route: 041
  2. VEPESID [Suspect]
     Indication: GERM CELL CANCER
     Route: 041
  3. IFOSFAMIDE [Suspect]
     Indication: GERM CELL CANCER
     Dosage: FORMULATION: INJ
     Route: 041

REACTIONS (3)
  - DIABETES INSIPIDUS [None]
  - PANCYTOPENIA [None]
  - RENAL IMPAIRMENT [None]
